FAERS Safety Report 9063881 (Version 1)
Quarter: 2013Q1

REPORT INFORMATION
  Report Type: Report from Study
  Country: US (occurrence: US)
  Receive Date: 20130213
  Receipt Date: 20130213
  Transmission Date: 20140127
  Serious: Yes (Other)
  Sender: FDA-Public Use
  Company Number: US-ROCHE-1190601

PATIENT
  Age: 65 None
  Sex: 0

DRUGS (7)
  1. RITUXIMAB [Suspect]
     Indication: CHRONIC LYMPHOCYTIC LEUKAEMIA
     Route: 065
  2. CYCLOPHOSPHAMIDE [Suspect]
     Indication: CHRONIC LYMPHOCYTIC LEUKAEMIA
     Route: 065
  3. FLUDARABINE [Suspect]
     Indication: CHRONIC LYMPHOCYTIC LEUKAEMIA
     Route: 065
  4. LOVENOX [Concomitant]
     Indication: DEEP VEIN THROMBOSIS
  5. PROTONIX [Concomitant]
  6. VITAMIN K [Concomitant]
  7. COUMADINE [Concomitant]
     Indication: DEEP VEIN THROMBOSIS

REACTIONS (1)
  - Rectal haemorrhage [Unknown]
